FAERS Safety Report 15190691 (Version 1)
Quarter: 2018Q3

REPORT INFORMATION
  Report Type: Report from Study
  Country: US (occurrence: US)
  Receive Date: 20180724
  Receipt Date: 20180724
  Transmission Date: 20181010
  Serious: No
  Sender: FDA-Public Use
  Company Number: US-THERATECHNOLOGIES, INC.-TH-2018-00319

PATIENT

DRUGS (25)
  1. FAMOTIDINE. [Concomitant]
     Active Substance: FAMOTIDINE
     Dosage: 20 MG MILLIGRAM(S), UNK
     Dates: start: 20170703
  2. FAMOTIDINE. [Concomitant]
     Active Substance: FAMOTIDINE
     Dosage: 20 MG MILLIGRAM(S), UNK
     Dates: start: 20171211
  3. CLONIDINE. [Concomitant]
     Active Substance: CLONIDINE
     Dosage: 0.1 MG MILLIGRAM(S), UNK
     Dates: start: 20170814
  4. GABAPENTIN. [Concomitant]
     Active Substance: GABAPENTIN
     Dosage: 600 MG MILLIGRAM(S), UNK
     Dates: start: 20180308
  5. NIFEDIPINE. [Concomitant]
     Active Substance: NIFEDIPINE
     Dosage: 60 MG MILLIGRAM(S), UNK
     Dates: start: 20170703
  6. NIFEDIPINE. [Concomitant]
     Active Substance: NIFEDIPINE
     Dosage: 60 MG MILLIGRAM(S), UNK
     Dates: start: 20171211
  7. FISH OIL [Concomitant]
     Active Substance: FISH OIL
     Dosage: 1000 MG MILLIGRAM(S), UNK
     Dates: start: 20170703
  8. MULTIVITE                          /00067501/ [Concomitant]
     Dosage: UNK
     Dates: start: 20170703
  9. NORVIR [Concomitant]
     Active Substance: RITONAVIR
     Dosage: 100 MG MILLIGRAM(S), UNK
     Dates: start: 20160304
  10. APAP W/HYDROCODONE [Concomitant]
     Active Substance: ACETAMINOPHEN\HYDROCODONE
     Dosage: 5?325 MG
     Dates: start: 20160712
  11. POTASSIUM CHLORIDE. [Concomitant]
     Active Substance: POTASSIUM CHLORIDE
     Dosage: 10 MEQ, UNK
     Dates: start: 20180208
  12. CONTOUR [Concomitant]
     Dosage: UNK
     Dates: start: 20170928
  13. CICLOPIROX. [Concomitant]
     Active Substance: CICLOPIROX
     Dosage: UNK
     Dates: start: 20171207
  14. PRAVASTATIN. [Concomitant]
     Active Substance: PRAVASTATIN
     Dosage: 10 MG MILLIGRAM(S), UNK
     Dates: start: 20171023
  15. HYDROCHLOROTH [Concomitant]
     Active Substance: HYDROCHLOROTHIAZIDE
     Dosage: 25 MG MILLIGRAM(S), UNK
     Dates: start: 20170703
  16. METFORMIN [Concomitant]
     Active Substance: METFORMIN HYDROCHLORIDE
     Dosage: 500 MG MILLIGRAM(S), UNK
     Dates: start: 20180404
  17. TRUVADA [Concomitant]
     Active Substance: EMTRICITABINE\TENOFOVIR DISOPROXIL FUMARATE
     Dosage: 200?300
     Dates: start: 20160304
  18. CLONIDINE. [Concomitant]
     Active Substance: CLONIDINE
     Dosage: 0.1 MG MILLIGRAM(S), UNK
     Dates: start: 20170703
  19. EGRIFTA [Suspect]
     Active Substance: TESAMORELIN
     Indication: LIPODYSTROPHY ACQUIRED
     Dosage: 2 MG MILLIGRAM(S), DAILY DOSE
     Route: 058
     Dates: start: 20170411
  20. GABAPENTIN. [Concomitant]
     Active Substance: GABAPENTIN
     Dosage: 600 MG MILLIGRAM(S), UNK
     Dates: start: 20170703
  21. HYDROCHLOROTH [Concomitant]
     Active Substance: HYDROCHLOROTHIAZIDE
     Dosage: 25 MG MILLIGRAM(S), UNK
     Dates: start: 20180530
  22. MELOXICAM. [Concomitant]
     Active Substance: MELOXICAM
     Dosage: 7.5 MG MILLIGRAM(S), UNK
     Dates: start: 20180528
  23. POTASSIUM [Concomitant]
     Active Substance: POTASSIUM
     Dosage: 75 MG MILLIGRAM(S), UNK
     Dates: start: 20170703
  24. SERTRALINE [Concomitant]
     Active Substance: SERTRALINE HYDROCHLORIDE
     Dosage: 100 MG MILLIGRAM(S), UNK
     Dates: start: 20170703
  25. SERTRALINE [Concomitant]
     Active Substance: SERTRALINE HYDROCHLORIDE
     Dosage: 100 MG MILLIGRAM(S), UNK
     Dates: start: 20180212

REACTIONS (3)
  - Hypoaesthesia [Not Recovered/Not Resolved]
  - Carpal tunnel syndrome [Not Recovered/Not Resolved]
  - Arthritis [Not Recovered/Not Resolved]
